FAERS Safety Report 20966844 (Version 1)
Quarter: 2022Q2

REPORT INFORMATION
  Report Type: Spontaneous
  Country: PL (occurrence: PL)
  Receive Date: 20220616
  Receipt Date: 20220616
  Transmission Date: 20220720
  Serious: Yes (Hospitalization, Disabling)
  Sender: FDA-Public Use
  Company Number: PL-TEVA-2022-PL-2041632

PATIENT
  Age: 17 Year
  Sex: Female

DRUGS (8)
  1. VORICONAZOLE [Suspect]
     Active Substance: VORICONAZOLE
     Indication: Product used for unknown indication
     Dosage: UNK
  2. FLUCONAZOLE [Suspect]
     Active Substance: FLUCONAZOLE
     Indication: Product used for unknown indication
     Dosage: UNK
  3. FLOXAL [Concomitant]
     Active Substance: OFLOXACIN
     Dosage: UNK
  4. ACYCLOVIR [Concomitant]
     Active Substance: ACYCLOVIR
     Dosage: UNK
  5. DEXAMETHASONE [Concomitant]
     Active Substance: DEXAMETHASONE
     Dosage: UNK
  6. LEVOFLOXACIN [Concomitant]
     Active Substance: LEVOFLOXACIN
     Dosage: UNK
  7. Brolene [Concomitant]
     Dosage: UNK
  8. LOTEMAX [Concomitant]
     Active Substance: LOTEPREDNOL ETABONATE
     Dosage: UNK UNK, BID

REACTIONS (3)
  - Transplant rejection [Unknown]
  - Drug ineffective [Unknown]
  - Endophthalmitis [Recovered/Resolved with Sequelae]
